FAERS Safety Report 25314272 (Version 1)
Quarter: 2025Q2

REPORT INFORMATION
  Report Type: Report from Study
  Country: CA (occurrence: CA)
  Receive Date: 20250514
  Receipt Date: 20250514
  Transmission Date: 20250717
  Serious: Yes (Other)
  Sender: CSL BEHRING
  Company Number: CA-BEH-2025204326

PATIENT
  Age: 68 Year
  Sex: Male
  Weight: 84 kg

DRUGS (6)
  1. HIZENTRA [Suspect]
     Active Substance: HUMAN IMMUNOGLOBULIN G
     Indication: Secondary immunodeficiency
     Dosage: 8 G, QW
     Route: 058
     Dates: start: 20231010
  2. IMOVANE [Concomitant]
     Active Substance: ZOPICLONE
  3. PERINDOPRIL [Concomitant]
     Active Substance: PERINDOPRIL
  4. TYLENOL [Concomitant]
     Active Substance: ACETAMINOPHEN
  5. CORTISONE [Concomitant]
     Active Substance: CORTISONE
  6. BENADRYL [Concomitant]
     Active Substance: DIPHENHYDRAMINE HYDROCHLORIDE

REACTIONS (1)
  - Vascular graft [Unknown]
